FAERS Safety Report 22159786 (Version 1)
Quarter: 2023Q1

REPORT INFORMATION
  Report Type: Spontaneous
  Country: DE (occurrence: DE)
  Receive Date: 20230331
  Receipt Date: 20230331
  Transmission Date: 20230417
  Serious: Yes (Other)
  Sender: FDA-Public Use
  Company Number: None

PATIENT
  Age: 70 Year
  Sex: Male
  Weight: 80 kg

DRUGS (1)
  1. LAGEVRIO [Suspect]
     Active Substance: MOLNUPIRAVIR
     Indication: Coronavirus infection
     Dosage: 4-0-4
     Route: 048
     Dates: start: 20221223, end: 20221227

REACTIONS (2)
  - Prostatic specific antigen increased [Unknown]
  - Prostate cancer [Unknown]

NARRATIVE: CASE EVENT DATE: 20230301
